FAERS Safety Report 7463496-7 (Version None)
Quarter: 2011Q2

REPORT INFORMATION
  Report Type: 
  Country: None (occurrence: None)
  Receive Date: 20110506
  Receipt Date: 20110428
  Transmission Date: 20111010
  Serious: Yes (Other)
  Sender: FDA-Public Use
  Company Number: PHHY2011US34037

PATIENT
  Sex: Female
  Weight: 61.4 kg

DRUGS (7)
  1. GILENYA [Suspect]
     Indication: RELAPSING-REMITTING MULTIPLE SCLEROSIS
     Dosage: 0.5 MG, QD
     Route: 048
     Dates: start: 20110114
  2. NORVASC [Concomitant]
     Indication: HYPERTENSION
     Dosage: UNK UKN, UNK
     Dates: start: 20061201
  3. SYNTHROID [Concomitant]
     Indication: HYPOTHYROIDISM
     Dosage: UNK UKN, UNK
     Dates: start: 19720101
  4. NEURONTIN [Concomitant]
     Indication: PAIN
     Dosage: UNK UKN, UNK
     Dates: start: 20010301
  5. LIPITOR [Concomitant]
     Indication: BLOOD CHOLESTEROL INCREASED
     Dosage: UNK UKN, UNK
     Dates: start: 20070101
  6. NEXIUM [Concomitant]
     Indication: IMPAIRED GASTRIC EMPTYING
     Dosage: UNK UKN, UNK
     Dates: start: 20070901
  7. ESTRADIOL [Concomitant]
     Dosage: UNK UKN, UNK
     Dates: start: 20010101

REACTIONS (1)
  - BASAL CELL CARCINOMA [None]
